FAERS Safety Report 20956324 (Version 1)
Quarter: 2022Q2

REPORT INFORMATION
  Report Type: Spontaneous
  Country: US (occurrence: None)
  Receive Date: 20220614
  Receipt Date: 20220614
  Transmission Date: 20220721
  Serious: No
  Sender: FDA-Public Use
  Company Number: None

PATIENT
  Age: 65 Year
  Sex: Male
  Weight: 104 kg

DRUGS (1)
  1. DICLOFENAC SODIUM [Suspect]
     Active Substance: DICLOFENAC SODIUM
     Indication: Pain
     Dates: start: 20220224, end: 20220301

REACTIONS (5)
  - Dizziness [None]
  - Vomiting [None]
  - Nausea [None]
  - Vertigo [None]
  - Abdominal discomfort [None]

NARRATIVE: CASE EVENT DATE: 20220301
